FAERS Safety Report 15894634 (Version 6)
Quarter: 2020Q1

REPORT INFORMATION
  Report Type: Spontaneous
  Country: US (occurrence: US)
  Receive Date: 20190131
  Receipt Date: 20200302
  Transmission Date: 20200409
  Serious: No
  Sender: FDA-Public Use
  Company Number: US-PFIZER INC-2019044557

PATIENT
  Age: 14 Year
  Sex: Male
  Weight: 48.53 kg

DRUGS (2)
  1. GENOTROPIN [Suspect]
     Active Substance: SOMATROPIN
     Indication: BLOOD GROWTH HORMONE
     Dosage: 2.4 MG, UNK; (2.4MG 1 INJECTION DAILY FOR 6 DAYS, TAKES 1 DAY OFF)
  2. GENOTROPIN [Suspect]
     Active Substance: SOMATROPIN
     Indication: BLOOD GROWTH HORMONE
     Dosage: 2 MG (6 DAYS A WEEK)
     Dates: start: 20160108

REACTIONS (5)
  - Haematocrit decreased [Unknown]
  - Device issue [Unknown]
  - Haemoglobin decreased [Unknown]
  - Device breakage [Unknown]
  - Product dose omission [Unknown]

NARRATIVE: CASE EVENT DATE: 20181102
